FAERS Safety Report 23182755 (Version 1)
Quarter: 2023Q4

REPORT INFORMATION
  Report Type: Spontaneous
  Country: US (occurrence: None)
  Receive Date: 20231114
  Receipt Date: 20231114
  Transmission Date: 20240110
  Serious: Yes (Other)
  Sender: FDA-Public Use
  Company Number: None

PATIENT
  Age: 11 Year
  Sex: Male
  Weight: 42.1 kg

DRUGS (1)
  1. CALASPARGASE PEGOL [Suspect]
     Active Substance: CALASPARGASE PEGOL
     Dosage: 3200 IU INTERNATIONAL UNIT INTRAVENOUS DRIP
     Route: 041
     Dates: start: 20230728, end: 20230728

REACTIONS (3)
  - Vomiting [None]
  - Infusion related reaction [None]
  - Tachycardia [None]

NARRATIVE: CASE EVENT DATE: 20230728
